FAERS Safety Report 9618107 (Version 2)
Quarter: 2013Q4

REPORT INFORMATION
  Report Type: Report from Study
  Country: JP (occurrence: JP)
  Receive Date: 20131013
  Receipt Date: 20131028
  Transmission Date: 20140711
  Serious: Yes (Other)
  Sender: FDA-Public Use
  Company Number: JP-TAKEDA-TCI2013A06051

PATIENT
  Age: 62 Year
  Sex: Male

DRUGS (7)
  1. LANSOPRAZOLE [Suspect]
     Indication: PROPHYLAXIS AGAINST GASTROINTESTINAL ULCER
     Dosage: 15 MG, QD
     Route: 048
     Dates: start: 20120302
  2. ARTIST [Suspect]
     Indication: HYPERTENSION
     Dosage: 20 MG, QD
     Route: 048
     Dates: end: 20130910
  3. BAYASPIRIN [Concomitant]
     Indication: THROMBOSIS PROPHYLAXIS
     Dosage: 100 MG, QD
     Route: 048
  4. WARFARIN [Concomitant]
     Route: 048
  5. JUSO [Concomitant]
     Dosage: 1 G, QD
     Route: 048
  6. EPADEL-S [Concomitant]
     Indication: DYSLIPIDAEMIA
     Dosage: 1800 MG, QD
     Route: 048
  7. ARGAMATE JELLY [Concomitant]
     Dosage: 50 G, QD
     Route: 048

REACTIONS (1)
  - Atrioventricular block second degree [Recovered/Resolved]
